FAERS Safety Report 6755363-9 (Version None)
Quarter: 2010Q2

REPORT INFORMATION
  Report Type: 
  Country: None (occurrence: None)
  Receive Date: 20100604
  Receipt Date: 20100524
  Transmission Date: 20101027
  Serious: Yes (Hospitalization, Other)
  Sender: FDA-Public Use
  Company Number: US-PFIZER INC-2010065071

PATIENT
  Sex: Male
  Weight: 117.91 kg

DRUGS (14)
  1. CHANTIX [Suspect]
     Indication: SMOKING CESSATION THERAPY
     Dosage: UNK
     Route: 048
     Dates: start: 20100503
  2. CYMBALTA [Concomitant]
     Dosage: 60 MG, 1X/DAY
     Route: 048
  3. ZOCOR [Concomitant]
     Dosage: 40 MG, UNK
  4. DUETACT [Concomitant]
     Dosage: UNK
  5. GABAPENTIN [Concomitant]
     Dosage: 200 MG, UNK
  6. LISINOPRIL [Concomitant]
     Dosage: UNK
  7. SITAGLIPTIN [Concomitant]
     Dosage: 100 MG, UNK
  8. GLYBURIDE [Concomitant]
     Dosage: UNK
  9. SENOKOT [Concomitant]
     Dosage: UNK
  10. OXYCONTIN [Concomitant]
     Dosage: UNK
  11. PRILOSEC [Concomitant]
     Dosage: 20 MG, UNK
  12. BUMEX [Concomitant]
     Dosage: 2 MG, UNK
  13. TYLENOL [Concomitant]
     Dosage: UNK
  14. PERCOCET [Concomitant]
     Dosage: UNK

REACTIONS (4)
  - BLOOD PRESSURE DECREASED [None]
  - HIP ARTHROPLASTY [None]
  - NAUSEA [None]
  - VOMITING [None]
